FAERS Safety Report 5701546-6 (Version None)
Quarter: 2008Q2

REPORT INFORMATION
  Report Type: 
  Country: None (occurrence: None)
  Receive Date: 20080408
  Receipt Date: 20080324
  Transmission Date: 20081010
  Serious: Yes (Other)
  Sender: FDA-Public Use
  Company Number: OPER20080065

PATIENT
  Sex: Male

DRUGS (1)
  1. OPANA ER [Suspect]
     Dosage: 10 MG, 1-2 TABS Q12H, PER ORAL
     Route: 048

REACTIONS (2)
  - CONSTIPATION [None]
  - RENAL FAILURE [None]
